FAERS Safety Report 7744758-2 (Version None)
Quarter: 2011Q3

REPORT INFORMATION
  Report Type: 
  Country: None (occurrence: None)
  Receive Date: 20110912
  Receipt Date: 20110912
  Transmission Date: 20111222
  Serious: No
  Sender: FDA-Public Use
  Company Number: None

PATIENT
  Age: 58 Year
  Sex: Female
  Weight: 58.967 kg

DRUGS (1)
  1. FLUTICASONE PROPIONATE [Suspect]
     Indication: ACUTE SINUSITIS
     Dosage: 1 SPRAY IN EACH NOSTRIL
     Route: 045
     Dates: start: 20110903, end: 20110930

REACTIONS (3)
  - DISTURBANCE IN ATTENTION [None]
  - CRYING [None]
  - PANIC ATTACK [None]
